FAERS Safety Report 13767439 (Version 1)
Quarter: 2017Q3

REPORT INFORMATION
  Report Type: Spontaneous
  Country: US (occurrence: US)
  Receive Date: 20170719
  Receipt Date: 20170719
  Transmission Date: 20171127
  Serious: Yes (Other)
  Sender: FDA-Public Use
  Company Number: None

PATIENT
  Age: 52 Year
  Sex: Female
  Weight: 97.98 kg

DRUGS (3)
  1. NORCO [Concomitant]
     Active Substance: ACETAMINOPHEN\HYDROCODONE BITARTRATE
  2. MIDRIN [Concomitant]
     Active Substance: ACETAMINOPHEN\DICHLORALPHENAZONE\ISOMETHEPTENE
  3. VIIBRYD [Suspect]
     Active Substance: VILAZODONE HYDROCHLORIDE
     Indication: DEPRESSION
     Dosage: ROUTE - ORALLY WITH BREAKFAST
     Route: 048
     Dates: start: 20170627, end: 20170710

REACTIONS (14)
  - Somnolence [None]
  - Restless legs syndrome [None]
  - Ageusia [None]
  - Hyperhidrosis [None]
  - Dysgeusia [None]
  - Feeling abnormal [None]
  - Headache [None]
  - Abnormal dreams [None]
  - Middle insomnia [None]
  - Flushing [None]
  - Insomnia [None]
  - Diarrhoea [None]
  - Nausea [None]
  - Dizziness [None]

NARRATIVE: CASE EVENT DATE: 20170709
